FAERS Safety Report 4705714-1 (Version None)
Quarter: 2005Q2

REPORT INFORMATION
  Report Type: 
  Country: None (occurrence: None)
  Receive Date: 20050629
  Receipt Date: 20050617
  Transmission Date: 20051028
  Serious: Yes (Other)
  Sender: FDA-Public Use
  Company Number: 2005-BP-10622RO

PATIENT
  Age: 21 Year
  Sex: Female

DRUGS (4)
  1. LITHIUM CARBONATE [Suspect]
     Indication: BIPOLAR DISORDER
     Dosage: 900 MG DAILY, PO
     Route: 048
  2. FOLIC ACID [Concomitant]
  3. CALCIUM (CALCIUM) [Concomitant]
  4. IRON (IRON) [Concomitant]

REACTIONS (3)
  - DRUG EXPOSURE DURING PREGNANCY [None]
  - RETROPLACENTAL HAEMATOMA [None]
  - UNINTENDED PREGNANCY [None]
